FAERS Safety Report 12722032 (Version 2)
Quarter: 2016Q3

REPORT INFORMATION
  Report Type: Report from Study
  Country: DE (occurrence: DE)
  Receive Date: 20160907
  Receipt Date: 20160912
  Transmission Date: 20161109
  Serious: Yes (Hospitalization, Other)
  Sender: FDA-Public Use
  Company Number: PHHY2016DE121202

PATIENT
  Sex: Male
  Weight: 73 kg

DRUGS (6)
  1. EXJADE [Suspect]
     Active Substance: DEFERASIROX
     Dosage: 500 MG, BID (2X 500 MG)
     Route: 048
     Dates: start: 20150203, end: 20160621
  2. CLINDA [Concomitant]
     Active Substance: CLINDAMYCIN HYDROCHLORIDE
     Indication: PRODUCT USED FOR UNKNOWN INDICATION
     Dosage: 1200 MG, QD
     Route: 065
     Dates: start: 20151021, end: 20151031
  3. SOLIRIS [Concomitant]
     Active Substance: ECULIZUMAB
     Indication: PRODUCT USED FOR UNKNOWN INDICATION
     Dosage: 900 MG, BIW
     Route: 065
     Dates: start: 20100608
  4. PREDNISON [Concomitant]
     Active Substance: PREDNISONE
     Indication: PRODUCT USED FOR UNKNOWN INDICATION
     Dosage: GRADULLY REDUSED
     Route: 065
     Dates: start: 20150509, end: 20150610
  5. EXJADE [Suspect]
     Active Substance: DEFERASIROX
     Indication: MYELODYSPLASTIC SYNDROME
     Dosage: 500 MG, QD (1X 500 MG)
     Route: 048
     Dates: start: 20140625, end: 20150203
  6. EXJADE [Suspect]
     Active Substance: DEFERASIROX
     Dosage: 500 MG, QD (1X 500 MG)
     Route: 048
     Dates: start: 20160622

REACTIONS (5)
  - Infection [Recovered/Resolved]
  - Systemic inflammatory response syndrome [Recovered/Resolved]
  - Blood bilirubin increased [Unknown]
  - Pulpitis dental [Recovered/Resolved]
  - Nasopharyngitis [Recovered/Resolved]

NARRATIVE: CASE EVENT DATE: 20140806
